FAERS Safety Report 16857906 (Version 1)
Quarter: 2019Q3

REPORT INFORMATION
  Report Type: Report from Study
  Country: US (occurrence: US)
  Receive Date: 20190926
  Receipt Date: 20190926
  Transmission Date: 20191005
  Serious: Yes (Other)
  Sender: FDA-Public Use
  Company Number: US-AMGEN-USASL2019155916

PATIENT
  Sex: Female

DRUGS (1)
  1. REPATHA [Suspect]
     Active Substance: EVOLOCUMAB
     Indication: HYPERLIPIDAEMIA
     Dosage: 140 MILLIGRAM, Q2WK
     Route: 065

REACTIONS (7)
  - Alopecia [Unknown]
  - Impaired healing [Unknown]
  - Haemorrhagic diathesis [Unknown]
  - Myalgia [Unknown]
  - Blood blister [Unknown]
  - Back pain [Unknown]
  - Increased tendency to bruise [Unknown]
